FAERS Safety Report 15259769 (Version 1)
Quarter: 2018Q3

REPORT INFORMATION
  Report Type: Spontaneous
  Country: US (occurrence: US)
  Receive Date: 20180809
  Receipt Date: 20180809
  Transmission Date: 20181010
  Serious: No
  Sender: FDA-Public Use
  Company Number: US-MYLANLABS-2018M1058783

PATIENT
  Age: 63 Year
  Sex: Female
  Weight: 61 kg

DRUGS (2)
  1. ESTRADIOL. [Suspect]
     Active Substance: ESTRADIOL
     Indication: MENOPAUSE
     Dosage: 0.025 MG, QD
     Route: 062
     Dates: start: 20180509, end: 20180703
  2. ESTRADIOL. [Suspect]
     Active Substance: ESTRADIOL
     Dosage: 0.05 MG, QD
     Route: 062
     Dates: start: 20180703, end: 20180722

REACTIONS (2)
  - Drug ineffective [Recovered/Resolved]
  - Alopecia [Unknown]

NARRATIVE: CASE EVENT DATE: 20180509
